FAERS Safety Report 5079588-6 (Version None)
Quarter: 2006Q3

REPORT INFORMATION
  Report Type: 
  Country: None (occurrence: None)
  Receive Date: 20060808
  Receipt Date: 20060719
  Transmission Date: 20061208
  Serious: Yes (Other)
  Sender: FDA-Public Use
  Company Number: US200607003529

PATIENT
  Age: 52 Year
  Sex: Female

DRUGS (2)
  1. HUMULIN N [Suspect]
     Indication: DIABETES MELLITUS INSULIN-DEPENDENT
     Dosage: 20 UNK, DAILY (1/D), UNK
     Dates: start: 19960101
  2. HUMULIN R [Suspect]
     Indication: DIABETES MELLITUS INSULIN-DEPENDENT
     Dosage: SEE IMAGE
     Dates: start: 19960101

REACTIONS (4)
  - BLINDNESS [None]
  - ECONOMIC PROBLEM [None]
  - EYE HAEMORRHAGE [None]
  - LOSS OF EMPLOYMENT [None]
